FAERS Safety Report 6396200-4 (Version None)
Quarter: 2009Q4

REPORT INFORMATION
  Report Type: 
  Country: None (occurrence: None)
  Receive Date: 20091011
  Receipt Date: 20091006
  Transmission Date: 20100525
  Serious: Yes (Death, Hospitalization, Other)
  Sender: FDA-Public Use
  Company Number: PHHY2009BR43202

PATIENT
  Age: 89 Year
  Sex: Female

DRUGS (3)
  1. FORASEQ [Suspect]
     Indication: ASTHMA
     Dosage: 12/400 MCG 60/60, TWICE A DAY
  2. FORASEQ [Suspect]
     Indication: DYSPNOEA
  3. FORASEQ [Suspect]
     Indication: COUGH

REACTIONS (9)
  - BILIARY DYSKINESIA [None]
  - DECREASED APPETITE [None]
  - FEELING OF DESPAIR [None]
  - GAIT DISTURBANCE [None]
  - PAIN IN EXTREMITY [None]
  - RENAL DISORDER [None]
  - RENAL FAILURE [None]
  - RESPIRATORY FAILURE [None]
  - SEPSIS [None]
